FAERS Safety Report 15938816 (Version 1)
Quarter: 2019Q1

REPORT INFORMATION
  Report Type: Spontaneous
  Country: US (occurrence: US)
  Receive Date: 20190208
  Receipt Date: 20190208
  Transmission Date: 20190417
  Serious: No
  Sender: FDA-Public Use
  Company Number: US-ROCHE-2190501

PATIENT
  Age: 28 Year
  Sex: Female

DRUGS (1)
  1. XOLAIR [Suspect]
     Active Substance: OMALIZUMAB
     Indication: CHRONIC SPONTANEOUS URTICARIA
     Dosage: TOTAL OF 300MG ;ONGOING: UNKNOWN
     Route: 058

REACTIONS (5)
  - Product dose omission [Unknown]
  - Product packaging quantity issue [Unknown]
  - No adverse event [Unknown]
  - Wrong technique in product usage process [Unknown]
  - Product physical consistency issue [Unknown]

NARRATIVE: CASE EVENT DATE: 20180921
